FAERS Safety Report 5828050-9 (Version None)
Quarter: 2008Q3

REPORT INFORMATION
  Report Type: 
  Country: None (occurrence: None)
  Receive Date: 20080730
  Receipt Date: 20071129
  Transmission Date: 20090109
  Serious: No
  Sender: FDA-Public Use
  Company Number: A0696565A

PATIENT
  Age: 33 Year
  Sex: Male

DRUGS (3)
  1. ZANTAC [Suspect]
     Dosage: 300MG PER DAY
     Route: 048
     Dates: start: 20040101
  2. LASIX [Concomitant]
  3. BLOOD PRESSURE MEDICATION [Concomitant]

REACTIONS (1)
  - DRUG SCREEN FALSE POSITIVE [None]
